FAERS Safety Report 12571978 (Version 2)
Quarter: 2016Q4

REPORT INFORMATION
  Report Type: Spontaneous
  Country: JP (occurrence: JP)
  Receive Date: 20160719
  Receipt Date: 20161222
  Transmission Date: 20170207
  Serious: Yes (Death, Hospitalization)
  Sender: FDA-Public Use
  Company Number: JP-SA-2016SA080983

PATIENT
  Age: 33 Year
  Sex: Male
  Weight: 55.4 kg

DRUGS (4)
  1. DEXART [Concomitant]
     Active Substance: DEXAMETHASONE SODIUM PHOSPHATE
     Indication: VOMITING
     Route: 041
     Dates: start: 20150430, end: 20160405
  2. TAXOTERE [Suspect]
     Active Substance: DOCETAXEL
     Indication: PROPHYLAXIS
     Route: 041
     Dates: start: 20150528, end: 20160405
  3. GEMCITABINE [Suspect]
     Active Substance: GEMCITABINE\GEMCITABINE HYDROCHLORIDE
     Indication: PROPHYLAXIS
     Route: 041
     Dates: start: 20150430, end: 20160405
  4. GRANISETRON [Concomitant]
     Active Substance: GRANISETRON
     Indication: VOMITING
     Route: 041
     Dates: start: 20150430, end: 20160405

REACTIONS (7)
  - Malaise [Not Recovered/Not Resolved]
  - Generalised oedema [Not Recovered/Not Resolved]
  - Leukaemoid reaction [Not Recovered/Not Resolved]
  - Peripheral nerve sheath tumour malignant [Fatal]
  - Pleural effusion [Not Recovered/Not Resolved]
  - Hypoproteinaemia [Not Recovered/Not Resolved]
  - Respiratory failure [Not Recovered/Not Resolved]

NARRATIVE: CASE EVENT DATE: 20160412
